FAERS Safety Report 17008332 (Version 1)
Quarter: 2019Q4

REPORT INFORMATION
  Report Type: Spontaneous
  Country: US (occurrence: US)
  Receive Date: 20190928
  Receipt Date: 20190928
  Transmission Date: 20200122
  Serious: Yes (Other)
  Sender: FDA-Public Use
  Company Number: None

PATIENT
  Sex: Female

DRUGS (9)
  1. CLARITIN [Concomitant]
     Active Substance: LORATADINE
  2. HYDROCO [Concomitant]
  3. PROBIOTICS [Concomitant]
     Active Substance: PROBIOTICS NOS
  4. MULTIVIT [Concomitant]
     Active Substance: VITAMINS
  5. ENBREL [Suspect]
     Active Substance: ETANERCEPT
     Indication: PSORIATIC ARTHROPATHY
     Route: 058
     Dates: start: 20170815
  6. CELEBREX [Concomitant]
     Active Substance: CELECOXIB
  7. GLUCOSAMINE [Concomitant]
     Active Substance: GLUCOSAMINE
  8. OMEPRAZOLE. [Concomitant]
     Active Substance: OMEPRAZOLE
  9. SYNTHROID [Concomitant]
     Active Substance: LEVOTHYROXINE SODIUM

REACTIONS (2)
  - Knee operation [None]
  - Therapy cessation [None]
